FAERS Safety Report 19722192 (Version 3)
Quarter: 2021Q3

REPORT INFORMATION
  Report Type: Report from Study
  Country: None (occurrence: US)
  Receive Date: 20210818
  Receipt Date: 20210831
  Transmission Date: 20211014
  Serious: Yes (Hospitalization, Other)
  Sender: FDA-Public Use
  Company Number: US-ABBVIE-21K-163-4043638-00

PATIENT
  Age: 70 Year
  Sex: Male
  Weight: 104.51 kg

DRUGS (19)
  1. IMBRUVICA [Suspect]
     Active Substance: IBRUTINIB
     Indication: CHRONIC LYMPHOCYTIC LEUKAEMIA
     Route: 048
     Dates: start: 20201231, end: 202102
  2. IMBRUVICA [Suspect]
     Active Substance: IBRUTINIB
     Route: 048
     Dates: start: 20210222
  3. IMBRUVICA [Suspect]
     Active Substance: IBRUTINIB
     Route: 048
     Dates: start: 20210819
  4. ELIQUIS [Concomitant]
     Active Substance: APIXABAN
     Indication: CARDIAC DISORDER
  5. IMBRUVICA [Suspect]
     Active Substance: IBRUTINIB
     Route: 048
     Dates: start: 202101, end: 20210804
  6. COVID?19 VACCINE [Concomitant]
     Dosage: MODERNA
     Route: 030
     Dates: start: 20210211, end: 20210211
  7. IRON [Concomitant]
     Active Substance: IRON
     Indication: BLOOD IRON DECREASED
  8. ALLOPURINOL. [Concomitant]
     Active Substance: ALLOPURINOL
     Indication: GOUT
  9. ANORO ELLIPTA [Concomitant]
     Active Substance: UMECLIDINIUM BROMIDE\VILANTEROL TRIFENATATE
     Indication: LUNG DISORDER
  10. CETIRIZINE [Concomitant]
     Active Substance: CETIRIZINE HYDROCHLORIDE
     Indication: SINUS DISORDER
  11. LEVOTHYROXINE. [Concomitant]
     Active Substance: LEVOTHYROXINE
     Indication: THYROID DISORDER
  12. GABAPENTIN. [Concomitant]
     Active Substance: GABAPENTIN
     Indication: NEUROPATHY PERIPHERAL
  13. IMBRUVICA [Suspect]
     Active Substance: IBRUTINIB
     Route: 048
     Dates: start: 2019, end: 202101
  14. ATORVASTATIN [Concomitant]
     Active Substance: ATORVASTATIN
     Indication: BARRETT^S OESOPHAGUS
  15. METOPROLOL. [Concomitant]
     Active Substance: METOPROLOL
     Indication: CARDIAC DISORDER
  16. LASIX [Concomitant]
     Active Substance: FUROSEMIDE
     Indication: OEDEMA PERIPHERAL
  17. OMEPRAZOLE. [Concomitant]
     Active Substance: OMEPRAZOLE
     Indication: GASTRIC DISORDER
  18. COVID?19 VACCINE [Concomitant]
     Indication: COVID-19 IMMUNISATION
     Dosage: MODERNA
     Route: 030
     Dates: start: 20210114, end: 20210114
  19. MUCINEX [Concomitant]
     Active Substance: GUAIFENESIN
     Indication: SINUS DISORDER

REACTIONS (12)
  - Pleural effusion [Recovered/Resolved]
  - Muscle spasms [Recovered/Resolved]
  - Pain [Recovering/Resolving]
  - Osteoarthritis [Recovering/Resolving]
  - Pericardial effusion [Unknown]
  - Hypertension [Recovered/Resolved]
  - Diarrhoea [Recovering/Resolving]
  - Atrial fibrillation [Recovered/Resolved]
  - Cardiac flutter [Recovered/Resolved]
  - Joint swelling [Recovering/Resolving]
  - Chondropathy [Recovering/Resolving]
  - Abdominal pain [Recovered/Resolved]

NARRATIVE: CASE EVENT DATE: 2020
